FAERS Safety Report 4840289-8 (Version None)
Quarter: 2005Q4

REPORT INFORMATION
  Report Type: 
  Country: None (occurrence: None)
  Receive Date: 20051031
  Receipt Date: 20050708
  Transmission Date: 20060501
  Serious: No
  Sender: FDA-Public Use
  Company Number: 200515715US

PATIENT
  Age: 44 Year
  Sex: Female

DRUGS (1)
  1. KETEK [Suspect]
     Indication: SINUSITIS
     Dosage: 400 (2 TABS) X 10 DAYS MG QD PO
     Route: 048
     Dates: start: 20050705

REACTIONS (1)
  - MUSCLE SPASMS [None]
